FAERS Safety Report 8858633 (Version 2)
Quarter: 2012Q4

REPORT INFORMATION
  Report Type: 
  Country: FR (occurrence: FR)
  Receive Date: 20121024
  Receipt Date: 20121109
  Transmission Date: 20130627
  Serious: Yes (Disabling, Other)
  Sender: FDA-Public Use
  Company Number: FR-BAYER-2012-110292

PATIENT
  Sex: Female

DRUGS (3)
  1. BETAFERON [Suspect]
     Dosage: 0.75 ml, UNK
     Route: 058
     Dates: start: 20121005
  2. ZOPHREN [Concomitant]
     Indication: NAUSEA
  3. ZOPHREN [Concomitant]
     Indication: VOMITING

REACTIONS (4)
  - Asthenia [None]
  - Bedridden [None]
  - Musculoskeletal stiffness [None]
  - Female sexual dysfunction [None]
